FAERS Safety Report 24857063 (Version 1)
Quarter: 2025Q1

REPORT INFORMATION
  Report Type: Spontaneous
  Country: BE (occurrence: BE)
  Receive Date: 20250117
  Receipt Date: 20250117
  Transmission Date: 20250409
  Serious: Yes (Death, Other)
  Sender: GUERBET
  Company Number: BE-GUERBET / CODALI-BE-20250002

PATIENT
  Age: 48 Year
  Sex: Female

DRUGS (3)
  1. LIPIODOL [Suspect]
     Active Substance: ETHIODIZED OIL
     Indication: Therapeutic embolisation
     Dosage: 5 ML N-BUTYL-CYANOACRYLATE MIXED WITH LIPIODOL (1ML CYANOACRYLATE AND 4 ML LIPIODOL).
  2. ENBUCRILATE [Suspect]
     Active Substance: ENBUCRILATE
     Indication: Therapeutic embolisation
  3. ASPIRIN [Concomitant]
     Active Substance: ASPIRIN
     Indication: Polycythaemia vera

REACTIONS (3)
  - Pulmonary embolism [Fatal]
  - Torsade de pointes [Recovered/Resolved]
  - Product use in unapproved indication [Unknown]
